FAERS Safety Report 21784663 (Version 1)
Quarter: 2022Q4

REPORT INFORMATION
  Report Type: Spontaneous
  Country: CH (occurrence: CH)
  Receive Date: 20221227
  Receipt Date: 20221227
  Transmission Date: 20230113
  Serious: Yes (Hospitalization)
  Sender: FDA-Public Use
  Company Number: CH-SM-2022-22089

PATIENT
  Age: 80 Year
  Sex: Male

DRUGS (13)
  1. IMBRUVICA [Suspect]
     Active Substance: IBRUTINIB
     Indication: Mantle cell lymphoma
     Route: 048
     Dates: start: 202204
  2. SODIUM PICOSULFATE [Concomitant]
     Active Substance: SODIUM PICOSULFATE
     Indication: Product used for unknown indication
     Route: 065
  3. TORSEMIDE [Concomitant]
     Active Substance: TORSEMIDE
     Indication: Product used for unknown indication
     Dosage: TIME INTERVAL: AS NECESSARY: 1-0-0,PAUSED DUE TO HYPOTENSION UPON ADMISSION TO HOSPITAL
     Route: 065
  4. CANDESARTAN [Concomitant]
     Active Substance: CANDESARTAN
     Indication: Product used for unknown indication
     Dosage: 0.5-0-0, 16.11.2022 PAUSED DUE TO HYPOTENSION
     Route: 065
     Dates: end: 20221116
  5. ECOMUCYL [Concomitant]
     Indication: Product used for unknown indication
     Dosage: 0-0-1, STOPPED UPON ADMISSION TO HOSPITAL
     Route: 065
     Dates: end: 20221114
  6. REMERON [Concomitant]
     Active Substance: MIRTAZAPINE
     Indication: Product used for unknown indication
     Dosage: 0-0-0-0.5
     Route: 065
  7. VI DE 3 [Concomitant]
     Indication: Product used for unknown indication
     Dosage: 19-0-0
     Route: 065
  8. TAMBOCOR [Concomitant]
     Active Substance: FLECAINIDE ACETATE
     Indication: Product used for unknown indication
     Dosage: 0.5-0-0-0, STOPPED UPON ADMISSION TO HOSPITAL
     Route: 065
  9. PANTOPRAZOLE SODIUM [Concomitant]
     Active Substance: PANTOPRAZOLE SODIUM
     Indication: Product used for unknown indication
     Dosage: 0-0-1
     Route: 065
  10. MAGNESIUM ASPARTATE HYDROCHLORIDE [Concomitant]
     Active Substance: MAGNESIUM ASPARTATE HYDROCHLORIDE
     Indication: Product used for unknown indication
     Dosage: 1-0-0
     Route: 065
  11. OBINUTUZUMAB [Concomitant]
     Active Substance: OBINUTUZUMAB
     Indication: Product used for unknown indication
     Dosage: EVERY 30 DAYS
     Route: 042
  12. METOPROLOL SUCCINATE [Concomitant]
     Active Substance: METOPROLOL SUCCINATE
     Indication: Product used for unknown indication
     Dosage: 1-0-1, DECREASED DURING HOSPITALIZATION ON 16- NOV-2022 TO 12.5 MG 2X/DAY
     Route: 065
  13. METOPROLOL SUCCINATE [Concomitant]
     Active Substance: METOPROLOL SUCCINATE
     Indication: Product used for unknown indication
     Dosage: DECREASED DURING HOSPITALIZATION ON 16- NOV-2022 TO 12.5 MG 2X/DAY
     Route: 065

REACTIONS (3)
  - Pericarditis [Recovering/Resolving]
  - Polyserositis [Recovering/Resolving]
  - Liver disorder [Recovering/Resolving]

NARRATIVE: CASE EVENT DATE: 20221114
